FAERS Safety Report 8507483-6 (Version None)
Quarter: 2012Q3

REPORT INFORMATION
  Report Type: 
  Country: None (occurrence: None)
  Receive Date: 20120712
  Receipt Date: 20120706
  Transmission Date: 20120928
  Serious: Yes (Other)
  Sender: FDA-Public Use
  Company Number: GB-009507513-1207GBR001349

PATIENT

DRUGS (4)
  1. BISOPROLOL FUMARATE [Concomitant]
     Dosage: UNK
     Dates: start: 20120306, end: 20120513
  2. ZOCOR [Suspect]
     Dosage: 10 MG, UNK
     Route: 048
  3. WARFARIN SODIUM [Concomitant]
     Dosage: UNK
     Dates: start: 20120306, end: 20120513
  4. RAMIPRIL [Concomitant]
     Dosage: UNK
     Dates: start: 20120306, end: 20120513

REACTIONS (2)
  - AMNESIA [None]
  - CONFUSIONAL STATE [None]
